FAERS Safety Report 6279805-0 (Version None)
Quarter: 2009Q3

REPORT INFORMATION
  Report Type: 
  Country: None (occurrence: None)
  Receive Date: 20090721
  Receipt Date: 20090707
  Transmission Date: 20100115
  Serious: Yes (Other)
  Sender: FDA-Public Use
  Company Number: 001256

PATIENT
  Sex: Female
  Weight: 70 kg

DRUGS (3)
  1. VIMPAT [Suspect]
     Indication: PARTIAL SEIZURES
     Dosage: 200 MG BID ORAL
     Route: 048
     Dates: start: 20090601
  2. CLOBAZAM [Concomitant]
  3. LAMOTRIGIN [Concomitant]

REACTIONS (3)
  - DRY SKIN [None]
  - ERYTHEMA [None]
  - PRURITUS [None]
